FAERS Safety Report 9485638 (Version 1)
Quarter: 2013Q3

REPORT INFORMATION
  Report Type: Report from Study
  Country: US (occurrence: US)
  Receive Date: 20130829
  Receipt Date: 20130829
  Transmission Date: 20140515
  Serious: Yes (Hospitalization, Other)
  Sender: FDA-Public Use
  Company Number: US-BRISTOL-MYERS SQUIBB COMPANY-19201110

PATIENT
  Age: 40 Year
  Sex: Female
  Weight: 93 kg

DRUGS (11)
  1. DASATINIB [Suspect]
     Indication: ACUTE LYMPHOCYTIC LEUKAEMIA
     Dosage: INT ON 08-JUN-2013
     Route: 048
     Dates: start: 20130417
  2. MESNA [Suspect]
     Indication: ACUTE LYMPHOCYTIC LEUKAEMIA
     Dosage: LAST ADMIN:02-JUN-2013
     Dates: start: 20130417
  3. CYCLOPHOSPHAMIDE [Suspect]
     Indication: ACUTE LYMPHOCYTIC LEUKAEMIA
     Route: 042
     Dates: start: 20130417
  4. CYTARABINE [Suspect]
     Indication: ACUTE LYMPHOCYTIC LEUKAEMIA
     Dosage: INTRA-OMMAYA:LAST ADMIN: 06-JUN-2013
     Route: 042
     Dates: start: 20130417
  5. DEXAMETHASONE [Suspect]
     Indication: ACUTE LYMPHOCYTIC LEUKAEMIA
     Dosage: ORAL ALSO TAKEN:LAST ADMIN: 03-JUN-2013
     Route: 042
     Dates: start: 20130417
  6. DOXORUBICIN HCL [Suspect]
     Indication: ACUTE LYMPHOCYTIC LEUKAEMIA
     Dosage: LAST ADMIN 03-06-2013
     Route: 042
     Dates: start: 20130417
  7. G-CSF [Suspect]
     Indication: ACUTE LYMPHOCYTIC LEUKAEMIA
     Dosage: LAST ADMIN: 06-JUN-2013
     Dates: start: 20130417
  8. LEUCOVORIN CALCIUM [Suspect]
     Indication: ACUTE LYMPHOCYTIC LEUKAEMIA
     Dosage: LST ADMIN 10-MAY-2013
     Route: 042
     Dates: start: 20130417
  9. METHOTREXATE [Suspect]
     Indication: ACUTE LYMPHOCYTIC LEUKAEMIA
     Dosage: INTRA-OMMAYA:LAST ADMIN 03-JUN-2013
     Route: 042
     Dates: start: 20130417
  10. METHYLPREDNISOLONE [Suspect]
     Indication: ACUTE LYMPHOCYTIC LEUKAEMIA
     Dosage: LAST ADMIN 11-MAY-2013
     Route: 042
     Dates: start: 20130417
  11. VINCRISTINE SULFATE [Suspect]
     Indication: ACUTE LYMPHOCYTIC LEUKAEMIA
     Dosage: LAST ADMIN: 03-JUN-2013
     Route: 042
     Dates: start: 20130417

REACTIONS (3)
  - Sepsis [Recovered/Resolved]
  - Colitis [Recovered/Resolved]
  - Atrial fibrillation [Unknown]
